FAERS Safety Report 18652552 (Version 1)
Quarter: 2020Q4

REPORT INFORMATION
  Report Type: Spontaneous
  Country: US (occurrence: US)
  Receive Date: 20201223
  Receipt Date: 20201223
  Transmission Date: 20210114
  Serious: Yes (Hospitalization)
  Sender: FDA-Public Use
  Company Number: US-CELGENEUS-USA-20201206505

PATIENT
  Age: 63 Year
  Sex: Male

DRUGS (13)
  1. THALOMID [Concomitant]
     Active Substance: THALIDOMIDE
     Dosage: 100 MILLIGRAM
     Route: 065
     Dates: start: 201105
  2. DEXAMETHASON [Concomitant]
     Active Substance: DEXAMETHASONE
     Indication: PRODUCT USED FOR UNKNOWN INDICATION
     Route: 065
  3. NEXIUM [Concomitant]
     Active Substance: ESOMEPRAZOLE MAGNESIUM
     Indication: PRODUCT USED FOR UNKNOWN INDICATION
     Route: 065
  4. THALOMID [Concomitant]
     Active Substance: THALIDOMIDE
     Indication: PRODUCT USED FOR UNKNOWN INDICATION
     Dosage: 200 MILLIGRAM
     Route: 065
     Dates: start: 200501
  5. REVLIMID [Suspect]
     Active Substance: LENALIDOMIDE
     Indication: PLASMA CELL MYELOMA
     Dosage: 20 MILLIGRAM
     Route: 048
     Dates: start: 20200509
  6. KETOCONAZOLE. [Concomitant]
     Active Substance: KETOCONAZOLE
     Indication: PRODUCT USED FOR UNKNOWN INDICATION
     Route: 065
  7. MONTELUKAST [Concomitant]
     Active Substance: MONTELUKAST SODIUM
     Indication: PRODUCT USED FOR UNKNOWN INDICATION
     Route: 065
  8. THALOMID [Concomitant]
     Active Substance: THALIDOMIDE
     Dosage: 100 MILLIGRAM
     Route: 065
     Dates: start: 200604
  9. THALOMID [Concomitant]
     Active Substance: THALIDOMIDE
     Dosage: 150 MILLIGRAM
     Route: 065
     Dates: start: 200606
  10. THALOMID [Concomitant]
     Active Substance: THALIDOMIDE
     Dosage: 200 MILLIGRAM
     Route: 065
     Dates: start: 200612
  11. THALOMID [Concomitant]
     Active Substance: THALIDOMIDE
     Dosage: 400 MILLIGRAM
     Route: 065
     Dates: start: 201102
  12. THALOMID [Concomitant]
     Active Substance: THALIDOMIDE
     Dosage: 100 MILLIGRAM
     Route: 065
     Dates: start: 200710
  13. THALOMID [Concomitant]
     Active Substance: THALIDOMIDE
     Dosage: 200 MILLIGRAM
     Route: 065
     Dates: start: 201103

REACTIONS (1)
  - Femur fracture [Unknown]

NARRATIVE: CASE EVENT DATE: 20201218
